FAERS Safety Report 8917257 (Version 3)
Quarter: 2012Q4

REPORT INFORMATION
  Report Type: Report from Study
  Country: US (occurrence: US)
  Receive Date: 20121120
  Receipt Date: 20121217
  Transmission Date: 20130627
  Serious: Yes (Hospitalization)
  Sender: FDA-Public Use
  Company Number: US-EISAI INC-E2007-00872-CLI-US

PATIENT
  Age: 19 Year
  Sex: Male
  Weight: 80.7 kg

DRUGS (9)
  1. E2007 (PERAMPANEL) [Suspect]
     Indication: PARTIAL SEIZURES
     Dosage: Conversion phase
     Route: 048
     Dates: start: 20091104, end: 20100203
  2. E2007 (PERAMPANEL) [Suspect]
     Dosage: Maintenance phase
     Route: 048
     Dates: start: 20100203
  3. LEVETIRACETAM [Concomitant]
     Indication: EPILEPSY
     Route: 048
     Dates: start: 2009
  4. CARBATROL [Concomitant]
     Indication: EPILEPSY
     Route: 048
     Dates: start: 2009
  5. CLARITIN D [Concomitant]
  6. METAMUCIL [Concomitant]
  7. RISPERONE [Concomitant]
  8. ZOLOFT [Concomitant]
     Indication: DEPRESSION
     Dosage: 50 MG EVERY MORNING
     Route: 048
     Dates: start: 201204
  9. SINGULAIR [Concomitant]
     Indication: ASTHMA
     Dosage: 10 MG EVERY MORNING
     Route: 048
     Dates: start: 2009

REACTIONS (3)
  - Obsessive thoughts [Recovering/Resolving]
  - Delusion of grandeur [Recovered/Resolved]
  - Aggression [Recovered/Resolved]
